FAERS Safety Report 9460126 (Version 2)
Quarter: 2013Q3

REPORT INFORMATION
  Report Type: Spontaneous
  Country: US (occurrence: US)
  Receive Date: 20130815
  Receipt Date: 20130828
  Transmission Date: 20140515
  Serious: Yes (Other)
  Sender: FDA-Public Use
  Company Number: US-PFIZER INC-2013232536

PATIENT
  Age: 32 Year
  Sex: Male

DRUGS (1)
  1. EPIPEN [Suspect]
     Indication: ALLERGY TO ARTHROPOD STING
     Dosage: 0.3 ML, AS NEEDED

REACTIONS (6)
  - Accidental exposure to product [Recovered/Resolved]
  - Expired drug administered [Recovered/Resolved]
  - Peripheral coldness [Recovered/Resolved]
  - Skin discolouration [Recovered/Resolved]
  - Injection site haemorrhage [Recovered/Resolved]
  - Injection site hypoaesthesia [Recovered/Resolved]
